FAERS Safety Report 9719737 (Version 1)
Quarter: 2013Q4

REPORT INFORMATION
  Report Type: Other
  Country: US (occurrence: US)
  Receive Date: 20131128
  Receipt Date: 20131128
  Transmission Date: 20140711
  Serious: Yes (Hospitalization)
  Sender: FDA-Public Use
  Company Number: US-LUPIN PHARMACEUTICALS INC.-2013-01895

PATIENT
  Age: 35 Year
  Sex: Female

DRUGS (13)
  1. LEVETIRACETAM [Suspect]
     Indication: GRAND MAL CONVULSION
     Route: 065
  2. LEVETIRACETAM [Suspect]
     Indication: ABNORMAL BEHAVIOUR
     Route: 065
  3. LEVETIRACETAM [Suspect]
     Indication: GRAND MAL CONVULSION
     Route: 065
  4. LEVETIRACETAM [Suspect]
     Indication: ABNORMAL BEHAVIOUR
     Route: 065
  5. LEVETIRACETAM [Suspect]
     Indication: GRAND MAL CONVULSION
     Route: 065
  6. LEVETIRACETAM [Suspect]
     Indication: ABNORMAL BEHAVIOUR
     Route: 065
  7. LEVETIRACETAM [Suspect]
     Indication: GRAND MAL CONVULSION
     Route: 065
  8. LEVETIRACETAM [Suspect]
     Indication: ABNORMAL BEHAVIOUR
     Route: 065
  9. PHENYTOIN [Suspect]
     Indication: GRAND MAL CONVULSION
     Route: 065
  10. ZONISAMIDE [Concomitant]
     Indication: CONVULSION
     Route: 065
  11. ZONISAMIDE [Concomitant]
     Route: 065
  12. CLONAZEPAM [Concomitant]
     Indication: CONVULSION
     Route: 065
  13. LACOSAMIDE [Concomitant]
     Indication: CONVULSION
     Route: 065

REACTIONS (1)
  - Encephalitis [Recovered/Resolved]
